FAERS Safety Report 15207394 (Version 2)
Quarter: 2018Q3

REPORT INFORMATION
  Report Type: Spontaneous
  Country: US (occurrence: US)
  Receive Date: 20180727
  Receipt Date: 20180730
  Transmission Date: 20181010
  Serious: Yes (Hospitalization, Other)
  Sender: FDA-Public Use
  Company Number: US-PFIZER INC-2018299762

PATIENT
  Age: 56 Year
  Sex: Male
  Weight: 97.52 kg

DRUGS (3)
  1. LYRICA [Suspect]
     Active Substance: PREGABALIN
     Dosage: UNK, 1X/DAY (IN THE EVENING/AT NIGHT)
  2. LYRICA [Suspect]
     Active Substance: PREGABALIN
     Dosage: 100 MG, 2X/DAY
     Route: 048
  3. LYRICA [Suspect]
     Active Substance: PREGABALIN
     Indication: DIABETIC NEUROPATHY
     Dosage: 300 MG, TWICE OR THREE TIMES A DAY

REACTIONS (5)
  - Gait disturbance [Unknown]
  - Overdose [Unknown]
  - Renal disorder [Unknown]
  - Intentional product use issue [Unknown]
  - Infected bite [Unknown]

NARRATIVE: CASE EVENT DATE: 201807
